FAERS Safety Report 5689861-6 (Version None)
Quarter: 2008Q1

REPORT INFORMATION
  Report Type: 
  Country: None (occurrence: None)
  Receive Date: 20080331
  Receipt Date: 20080331
  Transmission Date: 20080703
  Serious: Yes (Hospitalization)
  Sender: FDA-Public Use
  Company Number: None

PATIENT
  Age: 26 Year
  Sex: Female
  Weight: 53.0709 kg

DRUGS (1)
  1. LAMICTAL [Suspect]
     Indication: CONVULSION

REACTIONS (1)
  - STEVENS-JOHNSON SYNDROME [None]
